FAERS Safety Report 6920248-1 (Version None)
Quarter: 2010Q3

REPORT INFORMATION
  Report Type: 
  Country: None (occurrence: None)
  Receive Date: 20100809
  Receipt Date: 20100730
  Transmission Date: 20110219
  Serious: Yes (Hospitalization, Disabling, Other)
  Sender: FDA-Public Use
  Company Number: 2009SP017681

PATIENT
  Age: 41 Year
  Sex: Female
  Weight: 47.6277 kg

DRUGS (9)
  1. NUVARING [Suspect]
     Indication: MENSTRUAL CYCLE MANAGEMENT
     Dosage: 1 DF; QM; VAG
     Route: 067
     Dates: end: 20050101
  2. NUVARING [Suspect]
     Indication: MENSTRUAL CYCLE MANAGEMENT
     Dosage: 1 DF; QM; VAG
     Route: 067
     Dates: start: 20031001
  3. NUVARING [Suspect]
     Indication: MENSTRUAL CYCLE MANAGEMENT
     Dosage: 1 DF; QM; VAG
     Route: 067
     Dates: start: 20040901
  4. TOPAMAX [Concomitant]
  5. NASACORT [Concomitant]
  6. AMITRIPTYLINE HYDROCHLORIDE [Concomitant]
  7. MAXALT [Concomitant]
  8. PARAFON FORTE [Concomitant]
  9. ACETAMINOPHEN [Concomitant]

REACTIONS (28)
  - ABDOMINAL PAIN [None]
  - ACTIVITIES OF DAILY LIVING IMPAIRED [None]
  - ANXIETY [None]
  - APHASIA [None]
  - APRAXIA [None]
  - BLOOD HOMOCYSTEINE DECREASED [None]
  - BLOOD POTASSIUM DECREASED [None]
  - BRAIN STEM HAEMORRHAGE [None]
  - CEREBRAL ARTERY OCCLUSION [None]
  - CEREBRAL INFARCTION [None]
  - CEREBROVASCULAR ACCIDENT [None]
  - CHEST PAIN [None]
  - COMMUNICATION DISORDER [None]
  - COMPLEX REGIONAL PAIN SYNDROME [None]
  - CONVULSION [None]
  - DEPRESSION [None]
  - HEMIANOPIA HOMONYMOUS [None]
  - INSOMNIA [None]
  - OSTEOPENIA [None]
  - OSTEOPOROSIS [None]
  - PAIN IN EXTREMITY [None]
  - PELVIC PAIN [None]
  - PROTEIN S DECREASED [None]
  - SINUSITIS [None]
  - UNRESPONSIVE TO STIMULI [None]
  - UPPER LIMB FRACTURE [None]
  - VAGINAL DISCHARGE [None]
  - WHITE BLOOD CELL COUNT INCREASED [None]
